FAERS Safety Report 9143128 (Version 1)
Quarter: 2013Q1

REPORT INFORMATION
  Report Type: Spontaneous
  Country: US (occurrence: US)
  Receive Date: 20130306
  Receipt Date: 20130306
  Transmission Date: 20140127
  Serious: Yes (Death)
  Sender: FDA-Public Use
  Company Number: US-PFIZER INC-2013075999

PATIENT
  Age: 59 Year
  Sex: Female

DRUGS (9)
  1. SUTENT [Suspect]
     Indication: PANCREATIC CARCINOMA
     Dosage: 25 MG, UNK
     Dates: start: 20121228
  2. BELLADONNA ALKALOIDS [Concomitant]
     Dosage: UNK
  3. DEXAMETHASONE [Concomitant]
     Dosage: UNK
  4. GAS-X [Concomitant]
     Dosage: UNK
  5. LISINOPRIL [Concomitant]
     Dosage: UNK
  6. LORAZEPAM [Concomitant]
     Dosage: UNK
  7. ONDANSETRON HYDROCHLORIDE [Concomitant]
     Dosage: UNK
  8. PROCHLORPERAZINE MALEATE [Concomitant]
     Dosage: UNK
  9. TEMODAR [Concomitant]
     Dosage: UNK

REACTIONS (1)
  - Death [Fatal]
